FAERS Safety Report 23061520 (Version 8)
Quarter: 2024Q2

REPORT INFORMATION
  Report Type: Spontaneous
  Country: US (occurrence: US)
  Receive Date: 20231013
  Receipt Date: 20240424
  Transmission Date: 20240716
  Serious: No
  Sender: FDA-Public Use
  Company Number: US-Ipsen Biopharmaceuticals, Inc.-2023-23584

PATIENT
  Sex: Female
  Weight: 70.9 kg

DRUGS (17)
  1. SOMATULINE DEPOT [Suspect]
     Active Substance: LANREOTIDE ACETATE
     Indication: Acromegaly
     Dosage: 120 MG/0.5ML
     Route: 058
  2. SOMATULINE DEPOT [Suspect]
     Active Substance: LANREOTIDE ACETATE
     Dosage: ONCE EVERY MONTH, 90 MG/0.3 ML, UNDER THE SKIN
     Route: 058
  3. FAMOTIDINE [Concomitant]
     Active Substance: FAMOTIDINE
     Dosage: 20 MG BY MOUTH TWICE A DAY
     Route: 048
  4. METRONIDAZOLE [Concomitant]
     Active Substance: METRONIDAZOLE
     Dosage: LOTION
  5. OXYBUTYNIN CHLORIDE [Concomitant]
     Active Substance: OXYBUTYNIN CHLORIDE
     Dosage: 5 MG BY MOUTH THREE TIMES A DAY
     Route: 048
  6. ACETAMINOPHEN [Concomitant]
     Active Substance: ACETAMINOPHEN
  7. CYCLOBENZAPRINE [Concomitant]
     Active Substance: CYCLOBENZAPRINE
  8. ASPIRIN [Concomitant]
     Active Substance: ASPIRIN
  9. NEBIVOLOL [Concomitant]
     Active Substance: NEBIVOLOL
  10. DIPHENHYDRAMINE [Concomitant]
     Active Substance: DIPHENHYDRAMINE
  11. SPIRONOLACTONE [Concomitant]
     Active Substance: SPIRONOLACTONE
     Dosage: 100 MG BY MOUTH TWICE A DAY
     Route: 048
  12. LAMOTRIGINE [Concomitant]
     Active Substance: LAMOTRIGINE
     Dosage: 100 MG BY MOUTH TWICE DAILY
     Route: 048
  13. LOSARTAN POTASSIUM [Concomitant]
     Active Substance: LOSARTAN POTASSIUM
  14. COLACE [Concomitant]
     Active Substance: DOCUSATE SODIUM
  15. ATORVASTATIN CALCIUM [Concomitant]
     Active Substance: ATORVASTATIN CALCIUM
     Route: 048
  16. KETOCONAZOLE [Concomitant]
     Active Substance: KETOCONAZOLE
  17. SOMAVERT [Concomitant]
     Active Substance: PEGVISOMANT

REACTIONS (11)
  - Nasal congestion [Unknown]
  - Discouragement [Unknown]
  - Amnesia [Unknown]
  - Bone disorder [Unknown]
  - Craniofacial deformity [Unknown]
  - Swelling face [Unknown]
  - Nasopharyngitis [Unknown]
  - Dizziness [Unknown]
  - Fatigue [Unknown]
  - Product supply issue [Unknown]
  - Product dose omission issue [Unknown]
